FAERS Safety Report 25745503 (Version 2)
Quarter: 2025Q3

REPORT INFORMATION
  Report Type: Spontaneous
  Country: US (occurrence: US)
  Receive Date: 20250901
  Receipt Date: 20250908
  Transmission Date: 20251020
  Serious: Yes (Life-Threatening, Hospitalization, Other)
  Sender: AUROBINDO
  Company Number: US-AUROBINDO-AUR-APL-2025-043196

PATIENT
  Age: 15 Year
  Sex: Male

DRUGS (3)
  1. ACETAMINOPHEN [Suspect]
     Active Substance: ACETAMINOPHEN
     Indication: Product used for unknown indication
     Route: 048
  2. ACTIVATED CHARCOAL [Concomitant]
     Active Substance: ACTIVATED CHARCOAL
     Indication: Product used for unknown indication
     Route: 048
  3. FOMEPIZOLE [Concomitant]
     Active Substance: FOMEPIZOLE
     Indication: Product used for unknown indication
     Route: 065

REACTIONS (6)
  - Toxicity to various agents [Recovering/Resolving]
  - Metabolic acidosis [Recovering/Resolving]
  - Intentional overdose [Recovering/Resolving]
  - Liver injury [Recovering/Resolving]
  - Hepatocellular injury [Unknown]
  - Mental status changes [Unknown]
